FAERS Safety Report 4967160-5 (Version None)
Quarter: 2006Q2

REPORT INFORMATION
  Report Type: 
  Country: None (occurrence: None)
  Receive Date: 20060404
  Receipt Date: 20060320
  Transmission Date: 20061013
  Serious: Yes (Hospitalization)
  Sender: FDA-Public Use
  Company Number: T200600095

PATIENT
  Age: 19 Month
  Sex: Female
  Weight: 12 kg

DRUGS (1)
  1. MORPHINE SULFATE [Suspect]
     Dosage: 100 MG, SINGLE, ORAL
     Route: 048
     Dates: start: 20060320, end: 20060320

REACTIONS (1)
  - ACCIDENTAL DRUG INTAKE BY CHILD [None]
